FAERS Safety Report 20883326 (Version 1)
Quarter: 2022Q2

REPORT INFORMATION
  Report Type: Spontaneous
  Country: GB (occurrence: GB)
  Receive Date: 20220527
  Receipt Date: 20220527
  Transmission Date: 20220721
  Serious: Yes (Hospitalization)
  Sender: FDA-Public Use
  Company Number: None

PATIENT
  Age: 67 Year
  Sex: Male

DRUGS (2)
  1. APIXABAN [Suspect]
     Active Substance: APIXABAN
     Indication: Product used for unknown indication
     Dosage: 5MG BD FOR 6 MONTHS
     Dates: start: 20210511, end: 20210513
  2. COVID-19 VACCINE [Concomitant]
     Dosage: 0.5ML STAT
     Route: 030
     Dates: start: 20210225, end: 20210225

REACTIONS (2)
  - Urticaria [Recovering/Resolving]
  - Rash [Recovering/Resolving]

NARRATIVE: CASE EVENT DATE: 20210513
